FAERS Safety Report 17582027 (Version 1)
Quarter: 2020Q1

REPORT INFORMATION
  Report Type: Spontaneous
  Country: US (occurrence: US)
  Receive Date: 20200325
  Receipt Date: 20200325
  Transmission Date: 20200409
  Serious: Yes (Other)
  Sender: FDA-Public Use
  Company Number: None

PATIENT
  Sex: Male
  Weight: 58.06 kg

DRUGS (3)
  1. PROLIA [Concomitant]
     Active Substance: DENOSUMAB
  2. ERLEADA [Suspect]
     Active Substance: APALUTAMIDE
     Indication: PROSTATE CANCER
     Route: 048
     Dates: start: 20200201
  3. FIRMAGON [Suspect]
     Active Substance: DEGARELIX ACETATE

REACTIONS (8)
  - Flushing [None]
  - Rash [None]
  - Palpitations [None]
  - Anxiety [None]
  - Arthralgia [None]
  - Panic reaction [None]
  - Hypertension [None]
  - Fear [None]
